FAERS Safety Report 15491019 (Version 1)
Quarter: 2018Q4

REPORT INFORMATION
  Report Type: Spontaneous
  Country: FR (occurrence: FR)
  Receive Date: 20181012
  Receipt Date: 20181012
  Transmission Date: 20190205
  Serious: Yes (Hospitalization, Other)
  Sender: FDA-Public Use
  Company Number: FR-AUROBINDO-AUR-APL-2018-049937

PATIENT
  Age: 70 Year
  Sex: Female

DRUGS (2)
  1. CARBOPLATIN. [Suspect]
     Active Substance: CARBOPLATIN
     Indication: OVARIAN CANCER METASTATIC
     Dosage: UNK
     Route: 042
     Dates: start: 20180331, end: 20180731
  2. PACLITAXEL. [Suspect]
     Active Substance: PACLITAXEL
     Indication: OVARIAN CANCER METASTATIC
     Dosage: UNK
     Route: 042
     Dates: start: 20180331, end: 20180731

REACTIONS (2)
  - Skin necrosis [Recovered/Resolved with Sequelae]
  - Angiodermatitis [Recovered/Resolved with Sequelae]

NARRATIVE: CASE EVENT DATE: 20180530
